FAERS Safety Report 23103706 (Version 1)
Quarter: 2023Q4

REPORT INFORMATION
  Report Type: Spontaneous
  Country: US (occurrence: None)
  Receive Date: 20231022
  Receipt Date: 20231022
  Transmission Date: 20240109
  Serious: Yes (Hospitalization)
  Sender: FDA-Public Use
  Company Number: None

PATIENT
  Age: 37 Year
  Sex: Male

DRUGS (1)
  1. LISINOPRIL [Suspect]
     Active Substance: LISINOPRIL
     Dates: start: 20230130, end: 20230411

REACTIONS (5)
  - Angioedema [None]
  - Pharyngeal swelling [None]
  - Dysphonia [None]
  - Secretion discharge [None]
  - Respiratory tract oedema [None]

NARRATIVE: CASE EVENT DATE: 20230411
